FAERS Safety Report 17477520 (Version 1)
Quarter: 2020Q1

REPORT INFORMATION
  Report Type: Spontaneous
  Country: US (occurrence: US)
  Receive Date: 20200228
  Receipt Date: 20200228
  Transmission Date: 20200409
  Serious: No
  Sender: FDA-Public Use
  Company Number: US-SMITH AND NEPHEW, INC-2019SMT00066

PATIENT
  Age: 69 Year
  Sex: Male
  Weight: 69.39 kg

DRUGS (1)
  1. COLLAGENASE SANTYL [Suspect]
     Active Substance: COLLAGENASE CLOSTRIDIUM HISTOLYTICUM
     Indication: LIMB INJURY
     Dosage: NICKLE THICKNESS SIZE, 1X/DAY, TO COVER WOUND
     Dates: start: 201904

REACTIONS (1)
  - Impaired healing [Recovering/Resolving]

NARRATIVE: CASE EVENT DATE: 201904
